FAERS Safety Report 24210751 (Version 1)
Quarter: 2024Q3

REPORT INFORMATION
  Report Type: Spontaneous
  Country: IN (occurrence: IN)
  Receive Date: 20240814
  Receipt Date: 20240814
  Transmission Date: 20241017
  Serious: Yes (Other)
  Sender: PERRIGO
  Company Number: IN-PERRIGO-24IN007396

PATIENT
  Age: 38 Year
  Sex: Male

DRUGS (15)
  1. ACETAMINOPHEN [Suspect]
     Active Substance: ACETAMINOPHEN
     Indication: Pyrexia
     Dosage: UNKNOWN, UNKNOWN
     Route: 048
  2. ACETAMINOPHEN [Suspect]
     Active Substance: ACETAMINOPHEN
     Indication: Cough
  3. ACETAMINOPHEN [Suspect]
     Active Substance: ACETAMINOPHEN
     Indication: Sneezing
  4. CETIRIZINE HYDROCHLORIDE [Suspect]
     Active Substance: CETIRIZINE HYDROCHLORIDE
     Indication: Pyrexia
     Dosage: UNKNOWN, UNKNOWN
     Route: 048
  5. CETIRIZINE HYDROCHLORIDE [Suspect]
     Active Substance: CETIRIZINE HYDROCHLORIDE
     Indication: Cough
  6. CETIRIZINE HYDROCHLORIDE [Suspect]
     Active Substance: CETIRIZINE HYDROCHLORIDE
     Indication: Sneezing
  7. AMOXICILLIN [Suspect]
     Active Substance: AMOXICILLIN
     Indication: Pyrexia
     Dosage: UNKNOWN, UNKNOWN
     Route: 065
  8. AMOXICILLIN [Suspect]
     Active Substance: AMOXICILLIN
     Indication: Cough
  9. AMOXICILLIN [Suspect]
     Active Substance: AMOXICILLIN
     Indication: Sneezing
  10. ETORICOXIB [Suspect]
     Active Substance: ETORICOXIB
     Indication: Pyrexia
     Dosage: UNKNOWN, UNKNOWN
     Route: 065
  11. ETORICOXIB [Suspect]
     Active Substance: ETORICOXIB
     Indication: Cough
  12. ETORICOXIB [Suspect]
     Active Substance: ETORICOXIB
     Indication: Sneezing
  13. DEXTROMETHORPHAN [Suspect]
     Active Substance: DEXTROMETHORPHAN
     Indication: Pyrexia
     Dosage: UNKNOWN, UNKNOWN
     Route: 065
  14. DEXTROMETHORPHAN [Suspect]
     Active Substance: DEXTROMETHORPHAN
     Indication: Cough
  15. DEXTROMETHORPHAN [Suspect]
     Active Substance: DEXTROMETHORPHAN
     Indication: Sneezing

REACTIONS (1)
  - Fixed eruption [Unknown]
